FAERS Safety Report 9642810 (Version 1)
Quarter: 2013Q4

REPORT INFORMATION
  Report Type: Other
  Country: US (occurrence: US)
  Receive Date: 20131024
  Receipt Date: 20131024
  Transmission Date: 20140711
  Serious: Yes (Hospitalization)
  Sender: FDA-Public Use
  Company Number: US-SHIRE-ALL1-2013-07140

PATIENT
  Sex: Female
  Weight: 58.96 kg

DRUGS (2)
  1. FOSRENOL [Suspect]
     Indication: BLOOD PHOSPHORUS INCREASED
     Dosage: 5000 MG, OTHER (ONE 1000MG IN AM, TWO 1000MG AT LUNCH, TWO 1000 MG AT DINNER)
     Route: 048
     Dates: start: 2011, end: 20130926
  2. ATORVASTATIN [Concomitant]
     Indication: BLOOD CHOLESTEROL INCREASED
     Dosage: 20 MG, 1X/DAY:QD
     Route: 048
     Dates: start: 2009

REACTIONS (1)
  - Renal disorder [Recovered/Resolved]
